FAERS Safety Report 13309445 (Version 2)
Quarter: 2017Q1

REPORT INFORMATION
  Report Type: Report from Study
  Country: CA (occurrence: CA)
  Receive Date: 20170309
  Receipt Date: 20170331
  Transmission Date: 20170428
  Serious: Yes (Hospitalization)
  Sender: FDA-Public Use
  Company Number: CA-JNJFOC-20161130252

PATIENT
  Age: 55 Year
  Sex: Female
  Weight: 48.9 kg

DRUGS (1)
  1. REMICADE [Suspect]
     Active Substance: INFLIXIMAB
     Indication: CROHN^S DISEASE
     Route: 042
     Dates: start: 20130115

REACTIONS (7)
  - Post procedural infection [Unknown]
  - Deep vein thrombosis [Unknown]
  - Postoperative wound infection [Unknown]
  - Neoplasm malignant [Unknown]
  - Metastasis [Unknown]
  - Sepsis [Unknown]
  - Ileostomy [Recovering/Resolving]

NARRATIVE: CASE EVENT DATE: 2016
